FAERS Safety Report 15222393 (Version 3)
Quarter: 2018Q3

REPORT INFORMATION
  Report Type: Spontaneous
  Country: JP (occurrence: JP)
  Receive Date: 20180731
  Receipt Date: 20180814
  Transmission Date: 20181010
  Serious: Yes (Hospitalization, Other)
  Sender: FDA-Public Use
  Company Number: JP-PFIZER INC-2017347988

PATIENT
  Age: 77 Year
  Sex: Male

DRUGS (2)
  1. BISOPROLOL [Concomitant]
     Active Substance: BISOPROLOL
     Indication: VENTRICULAR TACHYCARDIA
     Dosage: 0.625 MG, DAILY
     Route: 048
  2. AMIODARONE HCL [Suspect]
     Active Substance: AMIODARONE HYDROCHLORIDE
     Indication: VENTRICULAR TACHYCARDIA
     Dosage: 200 MG, DAILY

REACTIONS (2)
  - Eosinophilic pneumonia [Recovering/Resolving]
  - Interstitial lung disease [Recovering/Resolving]
